FAERS Safety Report 15895756 (Version 1)
Quarter: 2019Q1

REPORT INFORMATION
  Report Type: Spontaneous
  Country: US (occurrence: US)
  Receive Date: 20190131
  Receipt Date: 20190131
  Transmission Date: 20190417
  Serious: Yes (Other)
  Sender: FDA-Public Use
  Company Number: US-BRACCO-2019US00426

PATIENT
  Sex: Female

DRUGS (9)
  1. MULTIHANCE [Suspect]
     Active Substance: GADOBENATE DIMEGLUMINE
     Indication: DIAGNOSTIC PROCEDURE
  2. GADAVIST [Suspect]
     Active Substance: GADOBUTROL
     Indication: DIAGNOSTIC PROCEDURE
  3. DOTAREM [Suspect]
     Active Substance: GADOTERATE MEGLUMINE
     Indication: DIAGNOSTIC PROCEDURE
  4. OPTIMARK [Suspect]
     Active Substance: GADOVERSETAMIDE
     Indication: DIAGNOSTIC PROCEDURE
  5. EOVIST [Suspect]
     Active Substance: GADOXETATE DISODIUM
     Indication: DIAGNOSTIC PROCEDURE
  6. ABLAVAR [Suspect]
     Active Substance: GADOFOSVESET TRISODIUM
     Indication: DIAGNOSTIC PROCEDURE
  7. OMNISCAN [Suspect]
     Active Substance: GADODIAMIDE
     Indication: NUCLEAR MAGNETIC RESONANCE IMAGING
     Dosage: 18 ML
     Route: 042
     Dates: start: 20180717, end: 20180717
  8. PROHANCE [Suspect]
     Active Substance: GADOTERIDOL
     Indication: DIAGNOSTIC PROCEDURE
  9. MAGNEVIST [Suspect]
     Active Substance: GADOPENTETATE DIMEGLUMINE
     Indication: DIAGNOSTIC PROCEDURE

REACTIONS (3)
  - Injury [Unknown]
  - Hypersensitivity [Unknown]
  - Emotional distress [Unknown]
